FAERS Safety Report 8137448 (Version 7)
Quarter: 2014Q1

REPORT INFORMATION
  Report Type: Report from Study
  Country: US (occurrence: US)
  Receive Date: 20110915
  Receipt Date: 20140131
  Transmission Date: 20141002
  Serious: Yes (Other)
  Sender: FDA-Public Use
  Company Number: US-ROCHE-790617

PATIENT
  Age: 76 Year
  Sex: Male

DRUGS (2)
  1. BEVACIZUMAB [Suspect]
     Indication: AGE-RELATED MACULAR DEGENERATION
     Dosage: DOSE: 1.25 MG/0.05 ML, FREQUENCY: 2. LEFT EYE
     Route: 050
  2. BEVACIZUMAB [Suspect]
     Indication: CYSTOID MACULAR OEDEMA

REACTIONS (17)
  - Endophthalmitis [Recovering/Resolving]
  - Blindness [Unknown]
  - Streptococcus test positive [Unknown]
  - Visual acuity reduced [Unknown]
  - Product quality issue [Unknown]
  - Corneal scar [Unknown]
  - Iritis [Unknown]
  - Iris neovascularisation [Unknown]
  - Cyclitis [Unknown]
  - Vitritis [Unknown]
  - Retinal detachment [Unknown]
  - Necrotising retinitis [Unknown]
  - Choroiditis [Unknown]
  - Optic atrophy [Unknown]
  - Hypopyon [Unknown]
  - Hyphaema [Unknown]
  - Off label use [Unknown]
